FAERS Safety Report 8591983 (Version 2)
Quarter: 2013Q4

REPORT INFORMATION
  Report Type: Report from Study
  Country: US (occurrence: US)
  Receive Date: 20120601
  Receipt Date: 20131016
  Transmission Date: 20140711
  Serious: Yes (Death, Other)
  Sender: FDA-Public Use
  Company Number: US-CELGENEUS-163-CCAZA-12053404

PATIENT
  Sex: 0

DRUGS (4)
  1. AZACITIDINE INJECTABLE [Suspect]
     Indication: ACUTE MYELOID LEUKAEMIA
     Dosage: 75 MILLIGRAM/SQ. METER
     Route: 065
  2. GEMTUZUMAB OZOGAMICIN [Suspect]
     Indication: ACUTE MYELOID LEUKAEMIA
     Dosage: 3 MILLIGRAM/SQ. METER
     Route: 065
  3. HYDROXYUREA [Suspect]
     Indication: ACUTE MYELOID LEUKAEMIA
     Dosage: 3000 MILLIGRAM
     Route: 048
  4. ALLOPURINOL [Concomitant]
     Indication: PRODUCT USED FOR UNKNOWN INDICATION
     Dosage: DIAGNOSIS TO DAY 14
     Route: 048

REACTIONS (21)
  - Sudden death [Fatal]
  - Acute myeloid leukaemia [Fatal]
  - Febrile neutropenia [Fatal]
  - Embolism [Unknown]
  - Gastrointestinal disorder [Unknown]
  - Blood test abnormal [Unknown]
  - Metabolic disorder [Unknown]
  - Angiopathy [Unknown]
  - Mood altered [Unknown]
  - Skin disorder [Unknown]
  - Nervous system disorder [Unknown]
  - Mucosal inflammation [Unknown]
  - Lymphatic disorder [Unknown]
  - Muscular weakness [Unknown]
  - Eye infection [Unknown]
  - Gastrointestinal infection [Unknown]
  - Genitourinary tract infection [Unknown]
  - Haemorrhage [Unknown]
  - Influenza like illness [Unknown]
  - Decreased appetite [Unknown]
  - Skin infection [Unknown]
